FAERS Safety Report 16778364 (Version 1)
Quarter: 2019Q3

REPORT INFORMATION
  Report Type: Report from Study
  Country: None (occurrence: FI)
  Receive Date: 20190906
  Receipt Date: 20190906
  Transmission Date: 20191005
  Serious: Yes (Hospitalization)
  Sender: FDA-Public Use
  Company Number: FI-ABBVIE-19K-055-2911926-00

PATIENT
  Age: 73 Year
  Sex: Male

DRUGS (6)
  1. DULOXETINE. [Concomitant]
     Active Substance: DULOXETINE
     Indication: PRODUCT USED FOR UNKNOWN INDICATION
  2. PANTOPRAZOL [Concomitant]
     Active Substance: PANTOPRAZOLE SODIUM
     Indication: PRODUCT USED FOR UNKNOWN INDICATION
  3. TRINEURIN [Concomitant]
     Indication: PRODUCT USED FOR UNKNOWN INDICATION
  4. KLEXANE [Concomitant]
     Active Substance: ENOXAPARIN
     Indication: PRODUCT USED FOR UNKNOWN INDICATION
  5. MIRTAZAPIN [Concomitant]
     Active Substance: MIRTAZAPINE
     Indication: PRODUCT USED FOR UNKNOWN INDICATION
  6. DUODOPA [Suspect]
     Active Substance: CARBIDOPA\LEVODOPA
     Indication: PARKINSON^S DISEASE
     Dosage: MD: 6.0 ML. CONTINUOUS INFUSION 2.4 ML, EXTRA DOSE 2.6 ML, 16H TREATMENT
     Route: 050
     Dates: start: 2009

REACTIONS (4)
  - Obstructive airways disorder [Recovered/Resolved]
  - Fall [Recovered/Resolved]
  - Laryngeal injury [Recovered/Resolved]
  - Pharyngeal injury [Recovered/Resolved]

NARRATIVE: CASE EVENT DATE: 20190816
